FAERS Safety Report 5161786-4 (Version None)
Quarter: 2006Q4

REPORT INFORMATION
  Report Type: 
  Country: None (occurrence: None)
  Receive Date: 20061121
  Receipt Date: 20061108
  Transmission Date: 20070319
  Serious: Yes (Hospitalization, Other)
  Sender: FDA-Public Use
  Company Number: 2006138437

PATIENT
  Age: 62 Year
  Sex: Male
  Weight: 50 kg

DRUGS (2)
  1. MEDROL [Suspect]
     Indication: ASTHMA
     Dosage: INTRAVENOUS
     Route: 042
  2. AMINOPHYLLIN [Concomitant]

REACTIONS (12)
  - ASTHMA [None]
  - BRONCHIAL HYPERREACTIVITY [None]
  - C-REACTIVE PROTEIN INCREASED [None]
  - CHRONIC OBSTRUCTIVE PULMONARY DISEASE [None]
  - DUODENAL ULCER [None]
  - OEDEMA PERIPHERAL [None]
  - PHLEBOTOMUS FEVER [None]
  - PYREXIA [None]
  - RESPIRATORY DISORDER [None]
  - RESPIRATORY FAILURE [None]
  - RIGHT VENTRICULAR FAILURE [None]
  - VIRAL INFECTION [None]
